FAERS Safety Report 18201155 (Version 3)
Quarter: 2021Q2

REPORT INFORMATION
  Report Type: Report from Study
  Country: None (occurrence: US)
  Receive Date: 20200826
  Receipt Date: 20210405
  Transmission Date: 20210717
  Serious: Yes (Other)
  Sender: FDA-Public Use
  Company Number: US-ABBVIE-20K-163-3416665-00

PATIENT
  Sex: Male

DRUGS (1)
  1. SKYRIZI [Suspect]
     Active Substance: RISANKIZUMAB-RZAA
     Indication: PSORIASIS
     Route: 058

REACTIONS (5)
  - Rash macular [Recovering/Resolving]
  - Skin plaque [Recovered/Resolved]
  - Dyslexia [Not Recovered/Not Resolved]
  - Deafness [Not Recovered/Not Resolved]
  - Exposure to SARS-CoV-2 [Recovered/Resolved]
